FAERS Safety Report 16425906 (Version 1)
Quarter: 2019Q2

REPORT INFORMATION
  Report Type: Report from Study
  Country: DE (occurrence: DE)
  Receive Date: 20190613
  Receipt Date: 20190613
  Transmission Date: 20190711
  Serious: Yes (Other)
  Sender: FDA-Public Use
  Company Number: DE-ACTELION-A-CH2018-180053

PATIENT
  Age: 76 Year
  Sex: Female
  Weight: 63 kg

DRUGS (20)
  1. AMBRISENTAN [Concomitant]
     Active Substance: AMBRISENTAN
     Dosage: 5 MG, QD
     Route: 048
     Dates: start: 201612, end: 201802
  2. OPSUMIT [Suspect]
     Active Substance: MACITENTAN
     Indication: PULMONARY ARTERIAL HYPERTENSION
     Route: 048
  3. UPTRAVI [Suspect]
     Active Substance: SELEXIPAG
     Dosage: 1600 MCG, QD
     Route: 048
     Dates: start: 20180725, end: 20180802
  4. AMLODIPINE [Concomitant]
     Active Substance: AMLODIPINE BESYLATE
     Indication: HYPERTENSION
     Dosage: UNK, PRN
     Route: 048
  5. AMBRISENTAN [Concomitant]
     Active Substance: AMBRISENTAN
     Indication: PULMONARY ARTERIAL HYPERTENSION
     Dosage: 10 MG, QD
     Route: 048
     Dates: start: 201802
  6. SIMVASTATIN. [Concomitant]
     Active Substance: SIMVASTATIN
     Indication: HYPERLIPIDAEMIA
     Dosage: UNK, PRN
     Route: 048
  7. UPTRAVI [Suspect]
     Active Substance: SELEXIPAG
     Dosage: 2000 MCG, QD
     Route: 048
     Dates: start: 20180802, end: 20180809
  8. CLOPIDOGREL [Concomitant]
     Active Substance: CLOPIDOGREL BISULFATE
     Indication: RAYNAUD^S PHENOMENON
     Dosage: UNK
     Route: 048
     Dates: start: 20160425
  9. UPTRAVI [Suspect]
     Active Substance: SELEXIPAG
     Dosage: 800 MCG, QD
     Route: 048
     Dates: start: 20180716, end: 20180722
  10. UPTRAVI [Suspect]
     Active Substance: SELEXIPAG
     Dosage: 1200 MCG, QD
     Route: 048
     Dates: start: 20180722, end: 20180725
  11. UPTRAVI [Suspect]
     Active Substance: SELEXIPAG
     Dosage: 2400 MCG, QD
     Route: 048
     Dates: start: 20180809, end: 20180816
  12. UPTRAVI [Suspect]
     Active Substance: SELEXIPAG
     Dosage: 2800 MCG, QD
     Route: 048
     Dates: start: 20190130
  13. UPTRAVI [Suspect]
     Active Substance: SELEXIPAG
     Dosage: 2800 MCG, QD
     Route: 048
     Dates: start: 20180816, end: 20180823
  14. ADCIRCA [Concomitant]
     Active Substance: TADALAFIL
     Indication: PULMONARY ARTERIAL HYPERTENSION
     Dosage: 40 MG, QD
     Route: 048
     Dates: start: 20170102
  15. CANDESARTAN. [Concomitant]
     Active Substance: CANDESARTAN
     Indication: HYPERTENSION
     Dosage: UNK, PRN
     Route: 048
  16. UPTRAVI [Suspect]
     Active Substance: SELEXIPAG
     Dosage: 400 MCG, QD
     Route: 048
     Dates: start: 20180708, end: 20180715
  17. HYDROCHLOROTHIAZIDE. [Concomitant]
     Active Substance: HYDROCHLOROTHIAZIDE
     Indication: OEDEMA PERIPHERAL
     Dosage: UNK, PRN
     Route: 048
     Dates: start: 20180917
  18. PANTOPRAZOLE [Concomitant]
     Active Substance: PANTOPRAZOLE
     Indication: PROPHYLAXIS AGAINST GASTROINTESTINAL ULCER
     Dosage: UNK, PRN
     Route: 048
     Dates: start: 20161207
  19. UPTRAVI [Suspect]
     Active Substance: SELEXIPAG
     Indication: PULMONARY ARTERIAL HYPERTENSION
     Dosage: 3200 MCG, QD
     Route: 048
     Dates: start: 20180823, end: 20190130
  20. TORASEMID [Concomitant]
     Active Substance: TORSEMIDE
     Indication: PROPHYLAXIS
     Dosage: UNK, PRN
     Route: 048
     Dates: start: 20170102

REACTIONS (4)
  - Renal impairment [Not Recovered/Not Resolved]
  - Concomitant disease aggravated [Not Recovered/Not Resolved]
  - Oedema peripheral [Not Recovered/Not Resolved]
  - Diarrhoea [Not Recovered/Not Resolved]

NARRATIVE: CASE EVENT DATE: 20180620
